FAERS Safety Report 10776754 (Version 3)
Quarter: 2024Q2

REPORT INFORMATION
  Report Type: Spontaneous
  Country: PL (occurrence: PL)
  Receive Date: 20150209
  Receipt Date: 20240627
  Transmission Date: 20240716
  Serious: Yes (Death, Hospitalization, Other)
  Sender: FDA-Public Use
  Company Number: PL-SA-2015SA011086

PATIENT
  Age: 59 Year
  Sex: Male

DRUGS (9)
  1. LEFLUNOMIDE [Suspect]
     Active Substance: LEFLUNOMIDE
     Indication: Rheumatoid arthritis
     Dosage: 100 MG, QD
     Dates: start: 200911
  2. LEFLUNOMIDE [Suspect]
     Active Substance: LEFLUNOMIDE
     Dosage: 20 MG,QD
     Dates: start: 2009
  3. CYCLOPHOSPHAMIDE [Suspect]
     Active Substance: CYCLOPHOSPHAMIDE
     Indication: Acute interstitial pneumonitis
     Dosage: 150 MG,QD
     Dates: start: 2010
  4. PREDNISONE [Suspect]
     Active Substance: PREDNISONE
     Indication: Rheumatoid arthritis
     Dosage: 5 MG, QD
  5. PREDNISONE [Suspect]
     Active Substance: PREDNISONE
     Indication: Acute interstitial pneumonitis
     Dosage: 60 MG, QD
  6. METHYLPREDNISOLONE [Suspect]
     Active Substance: METHYLPREDNISOLONE
     Indication: Acute interstitial pneumonitis
     Dosage: 500 MG
     Route: 042
  7. METHYLPREDNISOLONE [Suspect]
     Active Substance: METHYLPREDNISOLONE
     Dosage: PULSES
  8. SULFASALAZINE [Concomitant]
     Active Substance: SULFASALAZINE
     Indication: Rheumatoid arthritis
     Dosage: UNK
  9. CHLOROQUINE PHOSPHATE [Concomitant]
     Active Substance: CHLOROQUINE PHOSPHATE
     Indication: Rheumatoid arthritis

REACTIONS (14)
  - Acute interstitial pneumonitis [Fatal]
  - Interstitial lung disease [Fatal]
  - Dyspnoea exertional [Fatal]
  - Pyrexia [Fatal]
  - Tachypnoea [Fatal]
  - Rales [Fatal]
  - Tachycardia [Fatal]
  - Cough [Fatal]
  - Hypoxia [Fatal]
  - Pulmonary hypertension [Fatal]
  - Leukopenia [Fatal]
  - Neutropenia [Fatal]
  - Off label use [Fatal]
  - Respiratory failure [Fatal]

NARRATIVE: CASE EVENT DATE: 20100101
